FAERS Safety Report 23839302 (Version 2)
Quarter: 2024Q2

REPORT INFORMATION
  Report Type: Spontaneous
  Country: JP (occurrence: JP)
  Receive Date: 20240509
  Receipt Date: 20240514
  Transmission Date: 20240716
  Serious: Yes (Other)
  Sender: FDA-Public Use
  Company Number: JP-PFIZER INC-PV202400019169

PATIENT
  Age: 82 Year
  Sex: Male

DRUGS (8)
  1. CIBINQO [Suspect]
     Active Substance: ABROCITINIB
     Indication: Dermatitis atopic
     Dosage: 100 MG, 1X/DAY
     Route: 048
     Dates: start: 20230621, end: 20230829
  2. CIBINQO [Suspect]
     Active Substance: ABROCITINIB
     Dosage: 100 MG, 1X/DAY
     Route: 048
     Dates: start: 20230923, end: 20240125
  3. CIBINQO [Suspect]
     Active Substance: ABROCITINIB
     Dosage: 100 MG, ALTERNATE DAY
     Route: 048
     Dates: start: 20240126
  4. OLOPATADINE [Concomitant]
     Active Substance: OLOPATADINE
     Indication: Dermatitis atopic
     Dosage: 5 MG, 2X/DAY
     Route: 048
     Dates: start: 20130318, end: 20231013
  5. BEPOTASTINE BESYLATE [Concomitant]
     Active Substance: BEPOTASTINE BESYLATE
     Indication: Dermatitis atopic
     Dosage: 10 MG, 2X/DAY
     Route: 048
     Dates: start: 20181106
  6. DIFLUCORTOLONE VALERATE [Concomitant]
     Active Substance: DIFLUCORTOLONE VALERATE
     Indication: Dermatitis atopic
     Dosage: APPROPRIATE AMOUNT X 1-2 TIMES/DAY
     Route: 062
     Dates: start: 20180515
  7. MYSER [DIFLUPREDNATE] [Concomitant]
     Indication: Dermatitis atopic
     Dosage: APPROPRIATE AMOUNT X TWICE/DAY
     Route: 062
     Dates: start: 20170405
  8. HEPARINOID [Concomitant]
     Indication: Dermatitis atopic
     Dosage: APPROPRIATE AMOUNT X TWICE/DAY
     Route: 062
     Dates: start: 20130318

REACTIONS (3)
  - Bowen^s disease [Unknown]
  - Malaise [Recovering/Resolving]
  - Off label use [Unknown]

NARRATIVE: CASE EVENT DATE: 20230807
